FAERS Safety Report 13512432 (Version 1)
Quarter: 2017Q2

REPORT INFORMATION
  Report Type: Spontaneous
  Country: TR (occurrence: CN)
  Receive Date: 20170504
  Receipt Date: 20170504
  Transmission Date: 20170830
  Serious: Yes (Hospitalization)
  Sender: FDA-Public Use
  Company Number: TR-AKORN PHARMACEUTICALS-2017AKN00540

PATIENT
  Age: 8 Year
  Sex: Female

DRUGS (2)
  1. ERYTHROMYCIN. [Suspect]
     Active Substance: ERYTHROMYCIN
     Indication: MYCOPLASMA INFECTION
     Dosage: 30 MG/KG, 1X/DAY
     Route: 065
  2. METHYLPREDNISOLONE. [Concomitant]
     Active Substance: METHYLPREDNISOLONE
     Dosage: 5 MG/KG, 1X/DAY
     Route: 065

REACTIONS (1)
  - Intussusception [Recovered/Resolved]
